FAERS Safety Report 10086040 (Version 1)
Quarter: 2014Q2

REPORT INFORMATION
  Report Type: Report from Study
  Country: AR (occurrence: AR)
  Receive Date: 20140418
  Receipt Date: 20140418
  Transmission Date: 20141212
  Serious: Yes (Hospitalization)
  Sender: FDA-Public Use
  Company Number: PHHY2014AR047284

PATIENT
  Age: 87 Year
  Sex: Female

DRUGS (2)
  1. EXELON PATCH [Suspect]
     Indication: PARKINSON^S DISEASE
     Dosage: 9.5 MG, DAILY
     Route: 062
     Dates: start: 201310
  2. SINTROM [Suspect]
     Indication: ANTICOAGULANT THERAPY
     Dosage: 0.5 OR 0.25 TABLET (4 MG) DAILY
     Route: 048
     Dates: start: 201310

REACTIONS (3)
  - Lung disorder [Recovered/Resolved]
  - Somnolence [Recovered/Resolved]
  - Dehydration [Recovered/Resolved]
